FAERS Safety Report 8453968 (Version 2)
Quarter: 2012Q4

REPORT INFORMATION
  Report Type: 
  Country: US (occurrence: US)
  Receive Date: 20120312
  Receipt Date: 20121011
  Transmission Date: 20130627
  Serious: Yes (Hospitalization)
  Sender: FDA-Public Use
  Company Number: US-BAYER-2012-023479

PATIENT
  Age: 17 Year
  Sex: Female
  Weight: 90.7 kg

DRUGS (5)
  1. YAZ [Suspect]
     Dosage: UNK
     Dates: start: 200802, end: 201002
  2. OCELLA [Suspect]
     Dosage: UNK
     Dates: start: 200802, end: 201002
  3. MOTRIN [Concomitant]
     Dosage: as needed
  4. MULTIVITAMIN [Concomitant]
     Dosage: as needed
  5. ALBUTEROL [Concomitant]
     Dosage: as needed

REACTIONS (3)
  - Cholelithiasis [None]
  - Mental disorder [None]
  - Depression [None]
